FAERS Safety Report 4509191-5 (Version None)
Quarter: 2004Q4

REPORT INFORMATION
  Report Type: 
  Country: None (occurrence: None)
  Receive Date: 20041025
  Receipt Date: 20040315
  Transmission Date: 20050328
  Serious: Yes (Other)
  Sender: FDA-Public Use
  Company Number: NSADSS2002015435

PATIENT
  Age: 36 Year
  Sex: Female
  Weight: 127.0072 kg

DRUGS (10)
  1. REMICADE [Suspect]
     Indication: CROHN'S DISEASE
     Dosage: INTRAVENOUS DRIP; SEE IMAGE
     Route: 041
     Dates: start: 20020319
  2. REMICADE [Suspect]
     Indication: CROHN'S DISEASE
     Dosage: INTRAVENOUS DRIP; SEE IMAGE
     Route: 041
     Dates: start: 20020501
  3. ASACOL [Concomitant]
  4. PURINETHOL [Concomitant]
  5. FOLIC ACID [Concomitant]
  6. FLAGYL [Concomitant]
  7. PREDNISONE [Concomitant]
  8. ENTOCORT (BUDESONIDE) [Concomitant]
  9. CIPRO [Concomitant]
  10. DIPHENHYDRAMINE (DIPHENHYDRAMINE) [Concomitant]

REACTIONS (5)
  - ARTHRALGIA [None]
  - DYSPNOEA [None]
  - FATIGUE [None]
  - FLUSHING [None]
  - INFUSION RELATED REACTION [None]
